FAERS Safety Report 6165128-7 (Version None)
Quarter: 2009Q2

REPORT INFORMATION
  Report Type: 
  Country: None (occurrence: None)
  Receive Date: 20090421
  Receipt Date: 20090421
  Transmission Date: 20091009
  Serious: Yes (Other)
  Sender: FDA-Public Use
  Company Number: None

PATIENT
  Age: 55 Year
  Sex: Female
  Weight: 44 kg

DRUGS (1)
  1. METHADONE [Suspect]
     Indication: DRUG DEPENDENCE
     Dosage: 140MG DAILY PO
     Route: 048
     Dates: start: 20080920, end: 20080922

REACTIONS (2)
  - RESPIRATORY DEPRESSION [None]
  - SEDATION [None]
